FAERS Safety Report 16938615 (Version 1)
Quarter: 2019Q4

REPORT INFORMATION
  Report Type: Spontaneous
  Country: US (occurrence: US)
  Receive Date: 20190828
  Receipt Date: 20190828
  Transmission Date: 20200122
  Serious: Yes (Other)
  Sender: FDA-Public Use
  Company Number: None

PATIENT
  Age: 36 Year
  Sex: Female
  Weight: 41.73 kg

DRUGS (1)
  1. METHYLPHENIDATE HYDROCHLORIDE. [Suspect]
     Active Substance: METHYLPHENIDATE HYDROCHLORIDE
     Indication: ATTENTION DEFICIT/HYPERACTIVITY DISORDER
     Route: 048
     Dates: start: 20190715, end: 20190716

REACTIONS (7)
  - Product substitution issue [None]
  - Therapeutic response decreased [None]
  - Disturbance in attention [None]
  - Feeling jittery [None]
  - Fluid retention [None]
  - Urine output decreased [None]
  - Social problem [None]

NARRATIVE: CASE EVENT DATE: 20190715
